FAERS Safety Report 18901004 (Version 1)
Quarter: 2021Q1

REPORT INFORMATION
  Report Type: Spontaneous
  Country: TW (occurrence: TW)
  Receive Date: 20210216
  Receipt Date: 20210216
  Transmission Date: 20210420
  Serious: Yes (Other)
  Sender: FDA-Public Use
  Company Number: TW-AMNEAL PHARMACEUTICALS-2021-AMRX-00390

PATIENT
  Age: 68 Year
  Sex: Female

DRUGS (1)
  1. ANAGRELIDE HYDROCHLORIDE. [Suspect]
     Active Substance: ANAGRELIDE HYDROCHLORIDE
     Indication: ESSENTIAL THROMBOCYTHAEMIA
     Dosage: UNK
     Route: 065

REACTIONS (2)
  - Ischaemic stroke [Recovering/Resolving]
  - Cerebral artery stenosis [Recovering/Resolving]
